FAERS Safety Report 18922698 (Version 2)
Quarter: 2021Q1

REPORT INFORMATION
  Report Type: Spontaneous
  Country: US (occurrence: US)
  Receive Date: 20210222
  Receipt Date: 20210323
  Transmission Date: 20210420
  Serious: Yes (Hospitalization, Other)
  Sender: FDA-Public Use
  Company Number: US-009507513-2102USA006831

PATIENT
  Age: 34 Year
  Sex: Female

DRUGS (1)
  1. KEYTRUDA [Suspect]
     Active Substance: PEMBROLIZUMAB
     Indication: THYMOMA MALIGNANT
     Dosage: UNK

REACTIONS (4)
  - Off label use [Unknown]
  - Immune-mediated myositis [Recovering/Resolving]
  - Overlap syndrome [Recovering/Resolving]
  - Myasthenia gravis [Recovering/Resolving]
